FAERS Safety Report 9533271 (Version 2)
Quarter: 2013Q3

REPORT INFORMATION
  Report Type: Spontaneous
  Country: US (occurrence: US)
  Receive Date: 20130918
  Receipt Date: 20130918
  Transmission Date: 20140515
  Serious: No
  Sender: FDA-Public Use
  Company Number: US-PURDUE-USA-2011-0074716

PATIENT
  Age: 83 Year
  Sex: Female
  Weight: 84.35 kg

DRUGS (3)
  1. BUTRANS [Suspect]
     Indication: BACK PAIN
     Dosage: 10 MCG/HR, DAILY
     Dates: start: 20110928
  2. BUTRANS [Interacting]
     Dosage: 10 MCG/HR, DAILY
     Route: 062
     Dates: start: 20110826, end: 20110921
  3. NORVASC [Interacting]
     Indication: PRODUCT USED FOR UNKNOWN INDICATION
     Dosage: 5 MG, BID

REACTIONS (2)
  - Drug interaction [Unknown]
  - Joint swelling [Recovered/Resolved]
